FAERS Safety Report 7979154-6 (Version None)
Quarter: 2011Q4

REPORT INFORMATION
  Report Type: 
  Country: None (occurrence: None)
  Receive Date: 20111214
  Receipt Date: 20111207
  Transmission Date: 20120403
  Serious: Yes (Other)
  Sender: FDA-Public Use
  Company Number: US-JNJFOC-20111203734

PATIENT
  Sex: Male
  Weight: 86.18 kg

DRUGS (3)
  1. XARELTO [Suspect]
     Indication: THROMBOSIS PROPHYLAXIS
     Route: 048
  2. TRAZODONE HCL [Concomitant]
  3. TESTOSTERONE [Concomitant]
     Route: 050

REACTIONS (2)
  - WOUND COMPLICATION [None]
  - WOUND HAEMORRHAGE [None]
